FAERS Safety Report 17538642 (Version 1)
Quarter: 2020Q1

REPORT INFORMATION
  Report Type: Spontaneous
  Country: US (occurrence: US)
  Receive Date: 20200313
  Receipt Date: 20200313
  Transmission Date: 20200409
  Serious: Yes (Disabling)
  Sender: FDA-Public Use
  Company Number: None

PATIENT
  Age: 80 Year
  Sex: Female
  Weight: 58.5 kg

DRUGS (1)
  1. BEOVU [Suspect]
     Active Substance: BROLUCIZUMAB-DBLL
     Indication: NEOVASCULAR AGE-RELATED MACULAR DEGENERATION
     Route: 031
     Dates: start: 20190204, end: 20200115

REACTIONS (3)
  - Retinal vascular occlusion [None]
  - Uveitis [None]
  - Eye inflammation [None]

NARRATIVE: CASE EVENT DATE: 20200122
